FAERS Safety Report 26054333 (Version 2)
Quarter: 2025Q4

REPORT INFORMATION
  Report Type: Spontaneous
  Country: EU (occurrence: EU)
  Receive Date: 20251117
  Receipt Date: 20251127
  Transmission Date: 20260118
  Serious: Yes (Hospitalization)
  Sender: SANDOZ
  Company Number: EU-JNJFOC-20251034122

PATIENT
  Age: 9 Decade
  Sex: Male

DRUGS (3)
  1. DEXAMETHASONE [Suspect]
     Active Substance: DEXAMETHASONE
     Indication: Plasma cell myeloma
     Dosage: LAST ADMINISTERED ON 25-SEP-2025, 30 DAYS AFTER THERAPY: 25-OCT-2025
     Route: 042
     Dates: start: 20230601
  2. DARATUMUMAB [Suspect]
     Active Substance: DARATUMUMAB
     Indication: Plasma cell myeloma
     Dosage: LAST ADMINISTERED ON 25-SEP-2025, 30 DAYS AFTER THERAPY: 25-OCT-2025
     Route: 058
     Dates: start: 20230601
  3. LENALIDOMIDE [Suspect]
     Active Substance: LENALIDOMIDE
     Indication: Plasma cell myeloma
     Dosage: LAST ADMINISTERED ON 15-OCT-2025, 30 DAYS AFTER THERAPY: 14-NOV-2025
     Route: 048
     Dates: start: 20250828

REACTIONS (3)
  - General physical health deterioration [Unknown]
  - Hyponatraemia [Recovered/Resolved]
  - Diarrhoea [Unknown]

NARRATIVE: CASE EVENT DATE: 20251021
